FAERS Safety Report 21279861 (Version 1)
Quarter: 2022Q3

REPORT INFORMATION
  Report Type: Spontaneous
  Country: US (occurrence: None)
  Receive Date: 20220831
  Receipt Date: 20220831
  Transmission Date: 20221027
  Serious: Yes (Other)
  Sender: FDA-Public Use
  Company Number: None

PATIENT
  Sex: Female

DRUGS (1)
  1. BOTOX [Suspect]
     Active Substance: ONABOTULINUMTOXINA
     Indication: Migraine
     Dosage: FREQUENCY: OTHER
     Route: 030
     Dates: start: 201802

REACTIONS (4)
  - Injection site reaction [None]
  - Skin indentation [None]
  - Skin wrinkling [None]
  - Pain [None]
